FAERS Safety Report 8512498-8 (Version None)
Quarter: 2012Q3

REPORT INFORMATION
  Report Type: 
  Country: None (occurrence: None)
  Receive Date: 20120716
  Receipt Date: 20120607
  Transmission Date: 20120928
  Serious: Yes (Other)
  Sender: FDA-Public Use
  Company Number: CA-GLAXOSMITHKLINE-A0980389A

PATIENT
  Sex: Female

DRUGS (2)
  1. TYKERB [Suspect]
     Indication: BREAST CANCER METASTATIC
     Dosage: 1250MG PER DAY
     Route: 048
     Dates: start: 20101116, end: 20120622
  2. XELODA [Concomitant]
     Dosage: 150MG UNKNOWN
     Route: 065

REACTIONS (5)
  - BLOOD POTASSIUM DECREASED [None]
  - BREAST CANCER METASTATIC [None]
  - BLOOD TEST ABNORMAL [None]
  - BLOOD CALCIUM DECREASED [None]
  - TRANSFUSION [None]
